FAERS Safety Report 18001838 (Version 3)
Quarter: 2020Q4

REPORT INFORMATION
  Report Type: Report from Study
  Country: DE (occurrence: DE)
  Receive Date: 20200709
  Receipt Date: 20201005
  Transmission Date: 20210113
  Serious: Yes (Other)
  Sender: FDA-Public Use
  Company Number: DE-MYLANLABS-2019M1076486

PATIENT
  Sex: Female
  Weight: 60 kg

DRUGS (7)
  1. KISQALI [Suspect]
     Active Substance: RIBOCICLIB
     Indication: BREAST CANCER METASTATIC
     Dosage: 600 MG, DAILY DOSE (21 DAYS INTAKE, 7 DAYS PAUSE)
     Route: 048
     Dates: start: 20190219, end: 20190318
  2. KISQALI [Suspect]
     Active Substance: RIBOCICLIB
     Dosage: 600MG,DAILY(21DAYS INTAKE,7 DAYS PAUSE)
     Route: 048
     Dates: start: 20190326, end: 20200316
  3. FULVESTRANT. [Suspect]
     Active Substance: FULVESTRANT
     Dosage: 500 MG, QD (EVERY FOURTH WEEK)
     Route: 030
     Dates: start: 20190319, end: 20200316
  4. FULVESTRANT. [Suspect]
     Active Substance: FULVESTRANT
     Dosage: 500 MG, QD (EVERY SECOND WEEK)
     Route: 030
     Dates: start: 20190219, end: 20190318
  5. FULVESTRANT. [Suspect]
     Active Substance: FULVESTRANT
     Indication: BREAST CANCER METASTATIC
     Dosage: 500 MG, EVERY SECOND WEEK
     Route: 030
     Dates: start: 20190219
  6. FULVESTRANT. [Suspect]
     Active Substance: FULVESTRANT
     Dosage: 500 MG, QD (EVERY FOURTH WEEK)
     Route: 030
     Dates: start: 20200324
  7. KISQALI [Suspect]
     Active Substance: RIBOCICLIB
     Dosage: 600 MILLIGRAM, QD (600 MG, QD (21 DAYS INTAKE, 7 DAYS PAUSE))
     Route: 048
     Dates: start: 20200324

REACTIONS (3)
  - Neutropenia [Recovered/Resolved]
  - Weight increased [Unknown]
  - Leukopenia [Recovered/Resolved]

NARRATIVE: CASE EVENT DATE: 20190305
